FAERS Safety Report 5013844-2 (Version None)
Quarter: 2006Q2

REPORT INFORMATION
  Report Type: 
  Country: None (occurrence: None)
  Receive Date: 20060530
  Receipt Date: 20060516
  Transmission Date: 20061013
  Serious: Yes (Hospitalization)
  Sender: FDA-Public Use
  Company Number: DE-ROCHE-447959

PATIENT
  Age: 64 Year
  Sex: Male

DRUGS (3)
  1. ZENAPAX [Suspect]
     Route: 065
     Dates: start: 20051119
  2. FK506 [Suspect]
     Route: 048
     Dates: start: 20051119
  3. FK506 [Suspect]
     Route: 048

REACTIONS (3)
  - BILE DUCT STENOSIS [None]
  - CHOLANGITIS [None]
  - LIVER TRANSPLANT REJECTION [None]
